FAERS Safety Report 5720286-0 (Version None)
Quarter: 2008Q2

REPORT INFORMATION
  Report Type: 
  Country: None (occurrence: None)
  Receive Date: 20080428
  Receipt Date: 20080414
  Transmission Date: 20081010
  Serious: Yes (Other)
  Sender: FDA-Public Use
  Company Number: JP-ROCHE-556791

PATIENT
  Age: 65 Year
  Sex: Female

DRUGS (3)
  1. TAMIFLU [Suspect]
     Indication: INFLUENZA
     Route: 048
     Dates: start: 20080325, end: 20080326
  2. TAMIFLU [Suspect]
     Route: 048
     Dates: start: 20080327, end: 20080327
  3. MEILAX [Concomitant]
     Dosage: FORM: ORAL FORMULATION NOT OTHERWISE SPECIFIED
     Route: 048

REACTIONS (1)
  - ABNORMAL BEHAVIOUR [None]
